FAERS Safety Report 16153782 (Version 1)
Quarter: 2019Q2

REPORT INFORMATION
  Report Type: Spontaneous
  Country: US (occurrence: US)
  Receive Date: 20190403
  Receipt Date: 20190403
  Transmission Date: 20190711
  Serious: No
  Sender: FDA-Public Use
  Company Number: US-PFIZER INC-2019135531

PATIENT
  Sex: Male
  Weight: 110.22 kg

DRUGS (1)
  1. GABAPENTIN. [Suspect]
     Active Substance: GABAPENTIN
     Indication: PAIN
     Dosage: 2100 MG, DAILY

REACTIONS (2)
  - Erectile dysfunction [Unknown]
  - Product use in unapproved indication [Unknown]
